FAERS Safety Report 19376266 (Version 3)
Quarter: 2021Q4

REPORT INFORMATION
  Report Type: Report from Study
  Country: KR (occurrence: KR)
  Receive Date: 20210604
  Receipt Date: 20211125
  Transmission Date: 20220303
  Serious: Yes (Other)
  Sender: FDA-Public Use
  Company Number: KR-KYOWAKIRIN-2021AKK009412

PATIENT
  Age: 70 Year
  Sex: Female

DRUGS (97)
  1. FILGRASTIM [Suspect]
     Active Substance: FILGRASTIM
     Indication: Product used for unknown indication
     Dosage: 300 UNK
     Route: 065
     Dates: start: 20120108, end: 20120118
  2. FILGRASTIM [Suspect]
     Active Substance: FILGRASTIM
     Dosage: 300 UNK
     Route: 065
     Dates: start: 20120206, end: 20120206
  3. FILGRASTIM [Suspect]
     Active Substance: FILGRASTIM
     Dosage: 300 UNK
     Route: 065
     Dates: start: 20120209, end: 20120210
  4. DECITABINE [Concomitant]
     Active Substance: DECITABINE
     Indication: Product used for unknown indication
     Dosage: 15 UNK, QD
     Route: 065
     Dates: start: 20110718, end: 20110722
  5. DECITABINE [Concomitant]
     Active Substance: DECITABINE
     Dosage: 15 UNK, QD
     Route: 065
     Dates: start: 20110822, end: 20110826
  6. DECITABINE [Concomitant]
     Active Substance: DECITABINE
     Dosage: 15 UNK, QD
     Route: 065
     Dates: start: 20110919, end: 20110923
  7. DECITABINE [Concomitant]
     Active Substance: DECITABINE
     Dosage: 15 UNK, QD
     Route: 065
     Dates: start: 20111017, end: 20111021
  8. DECITABINE [Concomitant]
     Active Substance: DECITABINE
     Dosage: 20 UNK, QD
     Route: 065
     Dates: start: 20110523, end: 20110527
  9. DECITABINE [Concomitant]
     Active Substance: DECITABINE
     Dosage: 20 UNK, QD
     Route: 065
     Dates: start: 20110620, end: 20110624
  10. DECITABINE [Concomitant]
     Active Substance: DECITABINE
     Dosage: 20 UNK, QD
     Route: 065
     Dates: start: 20111114, end: 20111118
  11. DECITABINE [Concomitant]
     Active Substance: DECITABINE
     Dosage: 20 UNK, QD
     Route: 065
     Dates: start: 20111212, end: 20111216
  12. DECITABINE [Concomitant]
     Active Substance: DECITABINE
     Dosage: 20 UNK, QD
     Route: 065
     Dates: start: 20120109, end: 20120113
  13. DECITABINE [Concomitant]
     Active Substance: DECITABINE
     Dosage: 20 UNK, QD
     Route: 065
     Dates: start: 20120206, end: 20120210
  14. DECITABINE [Concomitant]
     Active Substance: DECITABINE
     Dosage: 20 UNK, QD
     Route: 065
     Dates: start: 20120310, end: 20120314
  15. DECITABINE [Concomitant]
     Active Substance: DECITABINE
     Dosage: 20 UNK, QD
     Route: 065
     Dates: start: 20120416, end: 20120420
  16. DECITABINE [Concomitant]
     Active Substance: DECITABINE
     Dosage: 20 UNK, QD
     Route: 065
     Dates: start: 20120528, end: 20120601
  17. DECITABINE [Concomitant]
     Active Substance: DECITABINE
     Dosage: 20 UNK, QD
     Route: 065
     Dates: start: 20120702, end: 20120706
  18. DECITABINE [Concomitant]
     Active Substance: DECITABINE
     Dosage: 20 UNK, QD
     Route: 065
     Dates: start: 20120808, end: 20120812
  19. DECITABINE [Concomitant]
     Active Substance: DECITABINE
     Dosage: 20 UNK, QD
     Route: 065
     Dates: start: 20120910, end: 20120914
  20. DECITABINE [Concomitant]
     Active Substance: DECITABINE
     Dosage: 20 UNK, QD
     Route: 065
     Dates: start: 20121015, end: 20121019
  21. DECITABINE [Concomitant]
     Active Substance: DECITABINE
     Dosage: 20 UNK, QD
     Route: 065
     Dates: start: 20121119, end: 20121123
  22. ACYCLOVIR [Concomitant]
     Active Substance: ACYCLOVIR
     Indication: Product used for unknown indication
     Dosage: 400 MG
     Route: 065
     Dates: start: 20110521, end: 20110619
  23. ACYCLOVIR [Concomitant]
     Active Substance: ACYCLOVIR
     Dosage: 400 MG
     Route: 065
     Dates: start: 20110620, end: 20110717
  24. ACYCLOVIR [Concomitant]
     Active Substance: ACYCLOVIR
     Dosage: 400 MG
     Route: 065
     Dates: start: 20110720, end: 20110821
  25. ACYCLOVIR [Concomitant]
     Active Substance: ACYCLOVIR
     Dosage: 400 MG
     Route: 065
     Dates: start: 20110826, end: 20110918
  26. ACYCLOVIR [Concomitant]
     Active Substance: ACYCLOVIR
     Dosage: 400 MG
     Route: 065
     Dates: start: 20110918, end: 20111016
  27. ACYCLOVIR [Concomitant]
     Active Substance: ACYCLOVIR
     Dosage: 400 MG
     Route: 065
     Dates: start: 20111021, end: 20111113
  28. ACYCLOVIR [Concomitant]
     Active Substance: ACYCLOVIR
     Dosage: 400 MG
     Route: 065
     Dates: start: 20111116, end: 20111211
  29. ACYCLOVIR [Concomitant]
     Active Substance: ACYCLOVIR
     Dosage: 400 MG
     Dates: start: 20111214, end: 20120108
  30. ACYCLOVIR [Concomitant]
     Active Substance: ACYCLOVIR
     Dosage: 400 MG
     Route: 065
     Dates: start: 20120109, end: 20120205
  31. ACYCLOVIR [Concomitant]
     Active Substance: ACYCLOVIR
     Dosage: 400 MG
     Route: 065
     Dates: start: 20120204, end: 20130317
  32. ACYCLOVIR [Concomitant]
     Active Substance: ACYCLOVIR
     Dosage: 400 MG
     Route: 065
     Dates: start: 20120206, end: 20120309
  33. ACYCLOVIR [Concomitant]
     Active Substance: ACYCLOVIR
     Dosage: 400 MG
     Route: 065
     Dates: start: 20120310, end: 20120415
  34. ACYCLOVIR [Concomitant]
     Active Substance: ACYCLOVIR
     Dosage: 400 MG
     Route: 065
     Dates: start: 20120416, end: 20120527
  35. ACYCLOVIR [Concomitant]
     Active Substance: ACYCLOVIR
     Dosage: 400 MG
     Route: 065
     Dates: start: 20120528, end: 20120701
  36. ACYCLOVIR [Concomitant]
     Active Substance: ACYCLOVIR
     Dosage: 400 MG
     Route: 065
     Dates: start: 20120702, end: 20120807
  37. ACYCLOVIR [Concomitant]
     Active Substance: ACYCLOVIR
     Dosage: 400 MG
     Route: 065
     Dates: start: 20120808, end: 20120909
  38. ACYCLOVIR [Concomitant]
     Active Substance: ACYCLOVIR
     Dosage: 400 MG
     Route: 065
     Dates: start: 20120910, end: 20121014
  39. ACYCLOVIR [Concomitant]
     Active Substance: ACYCLOVIR
     Dosage: 400 MG
     Route: 065
     Dates: start: 20121015, end: 20121116
  40. ACYCLOVIR [Concomitant]
     Active Substance: ACYCLOVIR
     Dosage: 400 MG
     Route: 065
     Dates: start: 20121119, end: 20121231
  41. CEFIXIME [Concomitant]
     Active Substance: CEFIXIME
     Indication: Product used for unknown indication
     Dosage: 100 MG
     Route: 065
     Dates: start: 20121210, end: 20121226
  42. CEFIXIME [Concomitant]
     Active Substance: CEFIXIME
     Dosage: 200 MG
     Route: 065
     Dates: start: 20121005, end: 20121014
  43. CEFIXIME [Concomitant]
     Active Substance: CEFIXIME
     Dosage: 200 MG
     Route: 065
     Dates: start: 20121024, end: 20121106
  44. CEFIXIME [Concomitant]
     Active Substance: CEFIXIME
     Dosage: 200 MG
     Route: 065
     Dates: start: 20121119, end: 20121231
  45. CEFCAPENE [Concomitant]
     Active Substance: CEFCAPENE
     Indication: Product used for unknown indication
     Dosage: 300 MG
     Route: 065
     Dates: start: 20120206, end: 20120215
  46. CIPROFLOXACIN [Concomitant]
     Active Substance: CIPROFLOXACIN
     Indication: Product used for unknown indication
     Dosage: 500 MG
     Route: 065
     Dates: start: 20110521, end: 20110619
  47. CIPROFLOXACIN [Concomitant]
     Active Substance: CIPROFLOXACIN
     Dosage: 500 MG
     Route: 065
     Dates: start: 20110620, end: 20110717
  48. CIPROFLOXACIN [Concomitant]
     Active Substance: CIPROFLOXACIN
     Dosage: 500 MG
     Route: 065
     Dates: start: 20110720, end: 20110821
  49. CIPROFLOXACIN [Concomitant]
     Active Substance: CIPROFLOXACIN
     Dosage: 500 MG
     Route: 065
     Dates: start: 20110826, end: 20110918
  50. CIPROFLOXACIN [Concomitant]
     Active Substance: CIPROFLOXACIN
     Dosage: 500 MG
     Route: 065
     Dates: start: 20110908, end: 20111016
  51. CIPROFLOXACIN [Concomitant]
     Active Substance: CIPROFLOXACIN
     Dosage: 1000 MG
     Route: 065
     Dates: start: 20111021, end: 20111113
  52. CIPROFLOXACIN [Concomitant]
     Active Substance: CIPROFLOXACIN
     Dosage: 1000 MG
     Route: 065
     Dates: start: 20111116, end: 20111211
  53. CIPROFLOXACIN [Concomitant]
     Active Substance: CIPROFLOXACIN
     Dosage: 1000 MG
     Route: 065
     Dates: start: 20111214, end: 20120108
  54. CIPROFLOXACIN [Concomitant]
     Active Substance: CIPROFLOXACIN
     Dosage: 1000 MG
     Route: 065
     Dates: start: 20120109, end: 20120205
  55. CIPROFLOXACIN [Concomitant]
     Active Substance: CIPROFLOXACIN
     Dosage: 1000 MG
     Route: 065
     Dates: start: 20120310, end: 20120415
  56. CIPROFLOXACIN [Concomitant]
     Active Substance: CIPROFLOXACIN
     Dosage: 1000 MG
     Route: 065
     Dates: start: 20120416, end: 20120527
  57. CIPROFLOXACIN [Concomitant]
     Active Substance: CIPROFLOXACIN
     Dosage: 1000 MG
     Route: 065
     Dates: start: 20120808, end: 20120909
  58. CIPROFLOXACIN [Concomitant]
     Active Substance: CIPROFLOXACIN
     Dosage: 1000 MG
     Route: 065
     Dates: start: 20120910, end: 20120922
  59. CIPROFLOXACIN [Concomitant]
     Active Substance: CIPROFLOXACIN
     Dosage: 1000 MG
     Route: 065
     Dates: start: 20121015, end: 20121116
  60. CIPROFLOXACIN [Concomitant]
     Active Substance: CIPROFLOXACIN
     Dosage: 1000 MG
     Route: 065
     Dates: start: 20121119, end: 20121231
  61. DARBEPOETIN ALFA [Concomitant]
     Active Substance: DARBEPOETIN ALFA
     Indication: Product used for unknown indication
     Dosage: 120 UNK
     Route: 065
     Dates: start: 20120206, end: 20120206
  62. DEFERASIROX [Concomitant]
     Active Substance: DEFERASIROX
     Indication: Product used for unknown indication
     Dosage: 100 MG
     Route: 065
     Dates: start: 20110718
  63. DORIPENEM [Concomitant]
     Active Substance: DORIPENEM
     Indication: Product used for unknown indication
     Dosage: 50 MG
     Route: 065
     Dates: start: 20121214, end: 20121215
  64. FLUCONAZOLE [Concomitant]
     Active Substance: FLUCONAZOLE
     Indication: Product used for unknown indication
     Dosage: 5 UNK
     Route: 065
     Dates: start: 20110720, end: 20110821
  65. FLUCONAZOLE [Concomitant]
     Active Substance: FLUCONAZOLE
     Dosage: 5 UNK
     Route: 065
     Dates: start: 20110826, end: 20110918
  66. FLUCONAZOLE [Concomitant]
     Active Substance: FLUCONAZOLE
     Dosage: 5 UNK
     Route: 065
     Dates: start: 20110918, end: 20111016
  67. FLUCONAZOLE [Concomitant]
     Active Substance: FLUCONAZOLE
     Dosage: 5 UNK
     Route: 065
     Dates: start: 20111021, end: 20111113
  68. FLUCONAZOLE [Concomitant]
     Active Substance: FLUCONAZOLE
     Dosage: 5 UNK
     Route: 065
     Dates: start: 20111116, end: 20111211
  69. FLUCONAZOLE [Concomitant]
     Active Substance: FLUCONAZOLE
     Dosage: 5 UNK
     Route: 065
     Dates: start: 20111214, end: 20120108
  70. FLUCONAZOLE [Concomitant]
     Active Substance: FLUCONAZOLE
     Dosage: 5 UNK
     Route: 065
     Dates: start: 20120109, end: 20120205
  71. ITRACONAZOLE [Concomitant]
     Active Substance: ITRACONAZOLE
     Indication: Product used for unknown indication
     Dosage: 40 UNK
     Dates: start: 20110521, end: 20110607
  72. ITRACONAZOLE [Concomitant]
     Active Substance: ITRACONAZOLE
     Dosage: 40 UNK
     Route: 065
     Dates: start: 20120206, end: 20120309
  73. ITRACONAZOLE [Concomitant]
     Active Substance: ITRACONAZOLE
     Dosage: 40 UNK
     Route: 065
     Dates: start: 20120310, end: 20120415
  74. ITRACONAZOLE [Concomitant]
     Active Substance: ITRACONAZOLE
     Dosage: 40 UNK
     Route: 065
     Dates: start: 20120416, end: 20120527
  75. ITRACONAZOLE [Concomitant]
     Active Substance: ITRACONAZOLE
     Dosage: 40 UNK
     Route: 065
     Dates: start: 20120528, end: 20120701
  76. ITRACONAZOLE [Concomitant]
     Active Substance: ITRACONAZOLE
     Dosage: 40 UNK
     Route: 065
     Dates: start: 20120702, end: 20120807
  77. ITRACONAZOLE [Concomitant]
     Active Substance: ITRACONAZOLE
     Dosage: 40 UNK
     Route: 065
     Dates: start: 20120808, end: 20120909
  78. ITRACONAZOLE [Concomitant]
     Active Substance: ITRACONAZOLE
     Dosage: 40 UNK
     Dates: start: 20120910, end: 20121014
  79. ITRACONAZOLE [Concomitant]
     Active Substance: ITRACONAZOLE
     Dosage: 40 UNK
     Dates: start: 20121015, end: 20121116
  80. ITRACONAZOLE [Concomitant]
     Active Substance: ITRACONAZOLE
     Dosage: 40 UNK
     Dates: start: 20121119, end: 20121231
  81. RANITIDINE [Concomitant]
     Active Substance: RANITIDINE
     Indication: Product used for unknown indication
     Dosage: 300 MG
     Route: 065
     Dates: start: 20110907
  82. SULFAMETHOXAZOLE AND TRIMETHOPRIM [Concomitant]
     Active Substance: SULFAMETHOXAZOLE\TRIMETHOPRIM
     Indication: Product used for unknown indication
     Dosage: 4 MG
     Route: 065
     Dates: start: 20110720, end: 20110821
  83. SULFAMETHOXAZOLE AND TRIMETHOPRIM [Concomitant]
     Active Substance: SULFAMETHOXAZOLE\TRIMETHOPRIM
     Dosage: 4 MG
     Route: 065
     Dates: start: 20110826, end: 20110918
  84. SULFAMETHOXAZOLE AND TRIMETHOPRIM [Concomitant]
     Active Substance: SULFAMETHOXAZOLE\TRIMETHOPRIM
     Dosage: 4 DF
     Route: 065
     Dates: start: 20110620, end: 20110717
  85. SULFAMETHOXAZOLE AND TRIMETHOPRIM [Concomitant]
     Active Substance: SULFAMETHOXAZOLE\TRIMETHOPRIM
     Dosage: 4 DF
     Route: 065
     Dates: start: 20110921, end: 20111016
  86. SULFAMETHOXAZOLE AND TRIMETHOPRIM [Concomitant]
     Active Substance: SULFAMETHOXAZOLE\TRIMETHOPRIM
     Dosage: 4 DF
     Route: 065
     Dates: start: 20111021, end: 20111113
  87. SULFAMETHOXAZOLE AND TRIMETHOPRIM [Concomitant]
     Active Substance: SULFAMETHOXAZOLE\TRIMETHOPRIM
     Dosage: 4 DF
     Route: 065
     Dates: start: 20111118, end: 20111211
  88. SULFAMETHOXAZOLE AND TRIMETHOPRIM [Concomitant]
     Active Substance: SULFAMETHOXAZOLE\TRIMETHOPRIM
     Dosage: 4 DF
     Route: 065
     Dates: start: 20111216, end: 20120108
  89. SULFAMETHOXAZOLE AND TRIMETHOPRIM [Concomitant]
     Active Substance: SULFAMETHOXAZOLE\TRIMETHOPRIM
     Dosage: 4 DF
     Route: 065
     Dates: start: 20120109, end: 20120205
  90. SULFAMETHOXAZOLE AND TRIMETHOPRIM [Concomitant]
     Active Substance: SULFAMETHOXAZOLE\TRIMETHOPRIM
     Dosage: 4 DF
     Route: 065
     Dates: start: 20120310, end: 20120415
  91. SULFAMETHOXAZOLE AND TRIMETHOPRIM [Concomitant]
     Active Substance: SULFAMETHOXAZOLE\TRIMETHOPRIM
     Dosage: 4 DF
     Route: 065
     Dates: start: 20120416, end: 20120527
  92. SULFAMETHOXAZOLE AND TRIMETHOPRIM [Concomitant]
     Active Substance: SULFAMETHOXAZOLE\TRIMETHOPRIM
     Dosage: 4 DF
     Route: 065
     Dates: start: 20120528, end: 20120701
  93. SULFAMETHOXAZOLE AND TRIMETHOPRIM [Concomitant]
     Active Substance: SULFAMETHOXAZOLE\TRIMETHOPRIM
     Dosage: 4 DF
     Route: 065
     Dates: start: 20120702, end: 20120807
  94. SULFAMETHOXAZOLE AND TRIMETHOPRIM [Concomitant]
     Active Substance: SULFAMETHOXAZOLE\TRIMETHOPRIM
     Dosage: 4 DF
     Route: 065
     Dates: start: 20120808, end: 20120909
  95. SULFAMETHOXAZOLE AND TRIMETHOPRIM [Concomitant]
     Active Substance: SULFAMETHOXAZOLE\TRIMETHOPRIM
     Dosage: 4 DF
     Route: 065
     Dates: start: 20120910, end: 20121014
  96. SULFAMETHOXAZOLE AND TRIMETHOPRIM [Concomitant]
     Active Substance: SULFAMETHOXAZOLE\TRIMETHOPRIM
     Dosage: 4 DF
     Route: 065
     Dates: start: 20121015, end: 20121116
  97. SULFAMETHOXAZOLE AND TRIMETHOPRIM [Concomitant]
     Active Substance: SULFAMETHOXAZOLE\TRIMETHOPRIM
     Dosage: 4 DF
     Route: 065
     Dates: start: 20121119, end: 20121231

REACTIONS (4)
  - Neutropenia [Recovered/Resolved]
  - Anaemia [Recovered/Resolved]
  - Pruritus [Recovered/Resolved]
  - Oedema [Recovered/Resolved]

NARRATIVE: CASE EVENT DATE: 20120311
